FAERS Safety Report 10597553 (Version 2)
Quarter: 2014Q4

REPORT INFORMATION
  Report Type: Report from Study
  Country: US (occurrence: US)
  Receive Date: 20141121
  Receipt Date: 20141121
  Transmission Date: 20150529
  Serious: Yes (Death)
  Sender: FDA-Public Use
  Company Number: US-PFIZER INC-2014314554

PATIENT

DRUGS (4)
  1. IRINOTECAN HCL [Suspect]
     Active Substance: IRINOTECAN HYDROCHLORIDE
     Dosage: 65 MG/M2, WEEKLY (WEEKS 1, 2, 4, AND 5)
  2. CETUXIMAB [Suspect]
     Active Substance: CETUXIMAB
     Dosage: 250 MG/M2, WEEKLY (ON WEEKS 1-8)
  3. CETUXIMAB [Suspect]
     Active Substance: CETUXIMAB
     Dosage: 400 MG/M2, WEEKLY LOADING DOSE ON WEEK 0
  4. CISPLATIN. [Suspect]
     Active Substance: CISPLATIN
     Dosage: 30 MG/M2, WEEKLY (WEEKS 1, 2, 4, AND 5)

REACTIONS (3)
  - Respiratory failure [Fatal]
  - Sepsis [Fatal]
  - Aspergillus infection [Fatal]
